FAERS Safety Report 20874106 (Version 1)
Quarter: 2022Q2

REPORT INFORMATION
  Report Type: Spontaneous
  Country: FR (occurrence: FR)
  Receive Date: 20220525
  Receipt Date: 20220525
  Transmission Date: 20220721
  Serious: Yes (Hospitalization)
  Sender: FDA-Public Use
  Company Number: None

PATIENT
  Age: 69 Year
  Sex: Male
  Weight: 93 kg

DRUGS (6)
  1. OPDIVO [Suspect]
     Active Substance: NIVOLUMAB
     Indication: Malignant melanoma
     Route: 042
     Dates: start: 20210121
  2. ACETAMINOPHEN [Concomitant]
     Active Substance: ACETAMINOPHEN
  3. ELIQUIS [Concomitant]
     Active Substance: APIXABAN
  4. BROMAZEPAM [Concomitant]
     Active Substance: BROMAZEPAM
  5. PREDNISONE [Concomitant]
     Active Substance: PREDNISONE
  6. BILASTINE [Concomitant]
     Active Substance: BILASTINE

REACTIONS (3)
  - General physical health deterioration [Recovered/Resolved]
  - Hyperthermia [Recovered/Resolved]
  - Off label use [Unknown]

NARRATIVE: CASE EVENT DATE: 20210610
